FAERS Safety Report 21892870 (Version 1)
Quarter: 2023Q1

REPORT INFORMATION
  Report Type: Report from Study
  Country: US (occurrence: US)
  Receive Date: 20230120
  Receipt Date: 20230120
  Transmission Date: 20230418
  Serious: Yes (Other)
  Sender: FDA-Public Use
  Company Number: US-JAZZ-2022-US-034700

PATIENT
  Sex: Female

DRUGS (3)
  1. XYWAV [Suspect]
     Active Substance: CALCIUM OXYBATE\MAGNESIUM OXYBATE\POTASSIUM OXYBATE\SODIUM OXYBATE
     Indication: Narcolepsy
  2. XYWAV [Suspect]
     Active Substance: CALCIUM OXYBATE\MAGNESIUM OXYBATE\POTASSIUM OXYBATE\SODIUM OXYBATE
     Indication: Cataplexy
  3. XYWAV [Suspect]
     Active Substance: CALCIUM OXYBATE\MAGNESIUM OXYBATE\POTASSIUM OXYBATE\SODIUM OXYBATE
     Indication: Somnolence

REACTIONS (15)
  - Hallucination, auditory [Unknown]
  - Constipation [Unknown]
  - Abdominal distension [Unknown]
  - Unevaluable event [Unknown]
  - Dreamy state [Unknown]
  - Contusion [Unknown]
  - Feeling abnormal [Unknown]
  - Tremor [Unknown]
  - Hyperhidrosis [Unknown]
  - Headache [Unknown]
  - Dizziness [Unknown]
  - Anxiety [Unknown]
  - Disorientation [Unknown]
  - Depression [Unknown]
  - Asthenia [Unknown]
